FAERS Safety Report 24450411 (Version 1)
Quarter: 2024Q4

REPORT INFORMATION
  Report Type: Spontaneous
  Country: US (occurrence: US)
  Receive Date: 20241017
  Receipt Date: 20241017
  Transmission Date: 20250115
  Serious: Yes (Death, Other)
  Sender: INCYTE
  Company Number: US-INCYTE CORPORATION-2024IN010980

PATIENT

DRUGS (1)
  1. JAKAFI [Suspect]
     Active Substance: RUXOLITINIB
     Indication: Acute lymphocytic leukaemia (in remission)
     Dosage: 4X25MG TABLETS (100MG), BID FOR 14 DAYS OFF, 14 DAYS ON
     Route: 048
     Dates: start: 202105

REACTIONS (3)
  - Death [Fatal]
  - Prescribed overdose [Unknown]
  - Off label use [Unknown]

NARRATIVE: CASE EVENT DATE: 20210501
